FAERS Safety Report 15295986 (Version 1)
Quarter: 2018Q3

REPORT INFORMATION
  Report Type: Spontaneous
  Country: US (occurrence: US)
  Receive Date: 20180820
  Receipt Date: 20180820
  Transmission Date: 20181010
  Serious: Yes (Hospitalization)
  Sender: FDA-Public Use
  Company Number: US-HTU-2018US017450

PATIENT
  Age: 89 Year
  Sex: Male
  Weight: 69 kg

DRUGS (8)
  1. DEXAMETHASONE. [Concomitant]
     Active Substance: DEXAMETHASONE
     Indication: PREMEDICATION
     Dosage: UNK
     Dates: start: 20150527, end: 20150602
  2. AZACITIDINE. [Suspect]
     Active Substance: AZACITIDINE
     Indication: MYELODYSPLASTIC SYNDROME
     Dosage: 125 MILLIGRAM, 7 DAYS
     Route: 058
     Dates: start: 20150527
  3. TERAZOSIN [Concomitant]
     Active Substance: TERAZOSIN\TERAZOSIN HYDROCHLORIDE
     Indication: BENIGN PROSTATIC HYPERPLASIA
     Dosage: UNK
     Dates: start: 20131206
  4. TRAMADOL. [Concomitant]
     Active Substance: TRAMADOL
     Indication: ARTHRALGIA
     Dosage: UNK
     Dates: start: 20180528
  5. COMPAZINE                          /00013302/ [Suspect]
     Active Substance: PROCHLORPERAZINE EDISYLATE
     Indication: NAUSEA
     Dosage: 10 MILLIGRAM, QID
     Route: 048
     Dates: start: 20150527
  6. AMBIEN [Concomitant]
     Active Substance: ZOLPIDEM TARTRATE
     Indication: SLEEP DISORDER THERAPY
     Dosage: UNK
     Dates: start: 20131206
  7. ALOXI [Suspect]
     Active Substance: PALONOSETRON HYDROCHLORIDE
     Indication: PROPHYLAXIS OF NAUSEA AND VOMITING
     Dosage: 0.25 MILLIGRAM, Q 3DAYS
     Route: 042
     Dates: start: 20150527
  8. GLASDEGIB [Suspect]
     Active Substance: GLASDEGIB
     Indication: MYELODYSPLASTIC SYNDROME
     Dosage: 100 MILLIGRAM, QD, FOR 28 DAYS
     Route: 048
     Dates: start: 20150528

REACTIONS (1)
  - Constipation [Recovered/Resolved]

NARRATIVE: CASE EVENT DATE: 20150604
